FAERS Safety Report 25853497 (Version 1)
Quarter: 2025Q3

REPORT INFORMATION
  Report Type: Spontaneous
  Country: US (occurrence: US)
  Receive Date: 20250926
  Receipt Date: 20250926
  Transmission Date: 20251020
  Serious: Yes (Death, Other)
  Sender: AMGEN
  Company Number: US-AMGEN-USASP2025190362

PATIENT
  Sex: Female

DRUGS (17)
  1. BLINATUMOMAB [Suspect]
     Active Substance: BLINATUMOMAB
     Indication: Acute myeloid leukaemia refractory
     Dosage: 5 MICROGRAM/KILOGRAM, QD (LOW-DOSE)
     Route: 065
  2. BLINATUMOMAB [Suspect]
     Active Substance: BLINATUMOMAB
     Dosage: 15 MICROGRAM/KILOGRAM, QD
     Route: 065
  3. VYXEOS [Concomitant]
     Active Substance: CYTARABINE\DAUNORUBICIN
     Indication: Acute myeloid leukaemia
  4. GEMTUZUMAB OZOGAMICIN [Concomitant]
     Active Substance: GEMTUZUMAB OZOGAMICIN
     Indication: Acute myeloid leukaemia
  5. GEMTUZUMAB OZOGAMICIN [Concomitant]
     Active Substance: GEMTUZUMAB OZOGAMICIN
  6. METHOTREXATE [Concomitant]
     Active Substance: METHOTREXATE
     Indication: Acute myeloid leukaemia
  7. PEG/L-ASPARAGINASE [Concomitant]
     Active Substance: PEGASPARGASE
     Indication: Acute myeloid leukaemia
  8. DASATINIB [Concomitant]
     Active Substance: DASATINIB
     Indication: Acute myeloid leukaemia
  9. CYTARABINE [Concomitant]
     Active Substance: CYTARABINE
     Indication: Acute myeloid leukaemia
  10. LUVELTAMAB TAZEVIBULIN [Concomitant]
     Active Substance: LUVELTAMAB TAZEVIBULIN
     Indication: Acute myeloid leukaemia
  11. PLERIXAFOR [Concomitant]
     Active Substance: PLERIXAFOR
     Indication: Acute myeloid leukaemia
  12. VENETOCLAX [Concomitant]
     Active Substance: VENETOCLAX
     Indication: Acute myeloid leukaemia
  13. IDARUBICIN [Concomitant]
     Active Substance: IDARUBICIN
     Indication: Acute myeloid leukaemia
  14. FLUDARABINE [Concomitant]
     Active Substance: FLUDARABINE PHOSPHATE
     Indication: Product used for unknown indication
  15. CYCLOPHOSPHAMIDE [Concomitant]
     Active Substance: CYCLOPHOSPHAMIDE
     Indication: Product used for unknown indication
  16. CYCLOSPORINE [Concomitant]
     Active Substance: CYCLOSPORINE
     Indication: Product used for unknown indication
  17. AZACITIDINE [Concomitant]
     Active Substance: AZACITIDINE
     Indication: Prophylaxis

REACTIONS (4)
  - Acute myeloid leukaemia [Fatal]
  - Acute myeloid leukaemia recurrent [Unknown]
  - Drug effective for unapproved indication [Unknown]
  - Off label use [Unknown]
